FAERS Safety Report 7609464 (Version 2)
Quarter: 2013Q4

REPORT INFORMATION
  Report Type: Spontaneous
  Country: US (occurrence: None)
  Receive Date: 20060131
  Receipt Date: 20131206
  Transmission Date: 20140711
  Serious: Yes (Death, Hospitalization, Other)
  Sender: FDA-Public Use
  Company Number: 2006RR-01503

PATIENT
  Age: 59 Year
  Sex: Male

DRUGS (10)
  1. AMOXICILLIN CLAVULANATE POTASSIUM [Suspect]
     Indication: CELLULITIS
     Dates: start: 20030606, end: 20030618
  2. AMOXICILLIN (AMOXICILLIN) [Suspect]
     Indication: CELLULITIS
     Route: 005
     Dates: start: 20030705
  3. ATENOLOL [Concomitant]
  4. TRIAMTERENE [Concomitant]
  5. HYDROCHLOROTHIAZIDE [Concomitant]
  6. ATORVASTATIN [Concomitant]
  7. TESTOSTERONE [Concomitant]
  8. HYDROCODONE/ACETAMINOPHEN [Concomitant]
  9. NAPROXEN [Concomitant]
  10. SILDENAFIL (SILDENAFIL) [Concomitant]

REACTIONS (12)
  - Hepatic failure [None]
  - Respiratory failure [None]
  - Hypotension [None]
  - Multi-organ failure [None]
  - Hepatitis acute [None]
  - Hepatic necrosis [None]
  - International normalised ratio increased [None]
  - Acute hepatic failure [None]
  - Exfoliative rash [None]
  - Hepatic encephalopathy [None]
  - Coagulopathy [None]
  - Continuous haemodiafiltration [None]
